FAERS Safety Report 10846560 (Version 1)
Quarter: 2015Q1

REPORT INFORMATION
  Report Type: Spontaneous
  Country: US (occurrence: US)
  Receive Date: 20150220
  Receipt Date: 20150220
  Transmission Date: 20150721
  Serious: Yes (Other)
  Sender: FDA-Public Use
  Company Number: US-PFIZER INC-2015060751

PATIENT
  Sex: Female

DRUGS (1)
  1. ROBITUSSIN MAXIMUM STRENGTH NIGHTTIME COUGH DM [Suspect]
     Active Substance: DEXTROMETHORPHAN HYDROBROMIDE\DOXYLAMINE SUCCINATE
     Dosage: UNK
     Dates: start: 201502

REACTIONS (3)
  - Sedation [Unknown]
  - Loss of consciousness [Unknown]
  - Drug intolerance [Unknown]

NARRATIVE: CASE EVENT DATE: 201502
